FAERS Safety Report 25055574 (Version 1)
Quarter: 2025Q1

REPORT INFORMATION
  Report Type: Spontaneous
  Country: US (occurrence: US)
  Receive Date: 20250308
  Receipt Date: 20250308
  Transmission Date: 20250408
  Serious: No
  Sender: NEPHRON PHARMACEUTICALS CORPORATION
  Company Number: US-Nephron Pharmaceuticals Corporation-2172528

PATIENT
  Age: 89 Year
  Sex: Female

DRUGS (1)
  1. ALBUTEROL SULFATE\IPRATROPIUM BROMIDE [Suspect]
     Active Substance: ALBUTEROL SULFATE\IPRATROPIUM BROMIDE
     Indication: Chronic obstructive pulmonary disease
     Dates: start: 20250205

REACTIONS (1)
  - Drug effect less than expected [Recovered/Resolved]
